FAERS Safety Report 11317316 (Version 1)
Quarter: 2015Q3

REPORT INFORMATION
  Report Type: Spontaneous
  Country: US (occurrence: US)
  Receive Date: 20150728
  Receipt Date: 20150728
  Transmission Date: 20151125
  Serious: Yes (Other)
  Sender: FDA-Public Use
  Company Number: US-SHIRE-US201508420

PATIENT
  Sex: Female
  Weight: 72.56 kg

DRUGS (7)
  1. OMEPRAZOLE. [Suspect]
     Active Substance: OMEPRAZOLE
     Indication: CROHN^S DISEASE
     Dosage: UNK, UNKNOWN
     Route: 065
  2. HUMIRA [Suspect]
     Active Substance: ADALIMUMAB
     Indication: CROHN^S DISEASE
  3. LIALDA [Suspect]
     Active Substance: MESALAMINE
     Indication: CROHN^S DISEASE
     Dosage: UNK, UNKNOWN
     Route: 048
  4. HUMIRA [Suspect]
     Active Substance: ADALIMUMAB
     Indication: ENTERITIS
     Dosage: 40 MG, 1X/2WKS
     Route: 065
     Dates: start: 2008
  5. VITAMIN B COMPLEX [Concomitant]
     Active Substance: CYANOCOBALAMIN\DEXPANTHENOL\NIACINAMIDE\PYRIDOXINE HYDROCHLORIDE\RIBOFLAVIN 5^-PHOSPHATE SODIUM\THIAMINE HYDROCHLORIDE\VITAMIN B COMPLEX
     Indication: VITAMIN B COMPLEX DEFICIENCY
     Dosage: UNK, UNKNOWN
     Route: 065
  6. VITAMIN D                          /00107901/ [Concomitant]
     Active Substance: ERGOCALCIFEROL
     Indication: VITAMIN D DEFICIENCY
     Dosage: UNK, UNKNOWN
     Route: 065
  7. LOMOTIL [Concomitant]
     Active Substance: ATROPINE SULFATE\DIPHENOXYLATE HYDROCHLORIDE
     Indication: CROHN^S DISEASE
     Dosage: UNK, AS REQ^D
     Route: 065

REACTIONS (10)
  - Haemorrhage [Unknown]
  - Sleep apnoea syndrome [Unknown]
  - Poor quality sleep [Unknown]
  - Nasal polyps [Unknown]
  - Product use issue [Recovered/Resolved]
  - Iron deficiency anaemia [Unknown]
  - Blood iron decreased [Unknown]
  - Haemoglobin decreased [Unknown]
  - Malabsorption [Unknown]
  - Contusion [Recovered/Resolved]

NARRATIVE: CASE EVENT DATE: 2013
